FAERS Safety Report 9087689 (Version 1)
Quarter: 2013Q1

REPORT INFORMATION
  Report Type: Spontaneous
  Country: FR (occurrence: FR)
  Receive Date: 20130201
  Receipt Date: 20130201
  Transmission Date: 20140127
  Serious: Yes (Hospitalization)
  Sender: FDA-Public Use
  Company Number: FR-SANOFI-AVENTIS-2013SA007202

PATIENT
  Age: 84 Year
  Sex: Female

DRUGS (7)
  1. LASILIX [Suspect]
     Indication: RENAL FAILURE CHRONIC
     Route: 048
     Dates: end: 20120619
  2. ESIDREX [Suspect]
     Indication: RENAL FAILURE CHRONIC
     Route: 048
     Dates: end: 20120619
  3. LEVOTHYROX [Concomitant]
  4. CARDENSIEL [Concomitant]
  5. PREVISCAN [Concomitant]
  6. ALLOPURINOL [Concomitant]
  7. PARIET [Concomitant]

REACTIONS (3)
  - Malaise [Recovered/Resolved]
  - Hyponatraemia [Recovered/Resolved]
  - Hypokalaemia [Recovered/Resolved]
